FAERS Safety Report 6305467-X (Version None)
Quarter: 2009Q3

REPORT INFORMATION
  Report Type: 
  Country: None (occurrence: None)
  Receive Date: 20090811
  Receipt Date: 20090804
  Transmission Date: 20100115
  Serious: Yes (Other)
  Sender: FDA-Public Use
  Company Number: PHEH2009US08755

PATIENT
  Sex: Female

DRUGS (2)
  1. ZOMETA [Suspect]
     Indication: BREAST CANCER METASTATIC
     Dosage: UNK
     Dates: end: 20090729
  2. ZOMETA [Suspect]
     Indication: PAIN

REACTIONS (2)
  - MOUTH ULCERATION [None]
  - OSTEONECROSIS [None]
